FAERS Safety Report 19103105 (Version 2)
Quarter: 2022Q1

REPORT INFORMATION
  Report Type: Spontaneous
  Country: US (occurrence: US)
  Receive Date: 20210407
  Receipt Date: 20220215
  Transmission Date: 20220423
  Serious: Yes (Death, Other)
  Sender: FDA-Public Use
  Company Number: US-GLAXOSMITHKLINE-US2021GSK075794

PATIENT
  Sex: Male

DRUGS (14)
  1. RANITIDINE [Suspect]
     Active Substance: RANITIDINE
     Indication: Cardiac disorder
     Dosage: 300 MG, QD
     Route: 065
     Dates: start: 200601, end: 201812
  2. RANITIDINE [Suspect]
     Active Substance: RANITIDINE
     Indication: Cardiac disorder
     Dosage: 300 MG BOTH
     Route: 065
     Dates: start: 200601, end: 201812
  3. RANITIDINE [Suspect]
     Active Substance: RANITIDINE
     Dosage: UNK, QD
     Route: 065
     Dates: start: 200601, end: 201812
  4. ZANTAC [Suspect]
     Active Substance: RANITIDINE HYDROCHLORIDE
     Indication: Cardiac disorder
     Dosage: 300 MG BOTH
     Route: 065
     Dates: start: 200601, end: 201812
  5. ZANTAC [Suspect]
     Active Substance: RANITIDINE HYDROCHLORIDE
     Dosage: UNK UNK, QD
     Route: 065
     Dates: start: 200601, end: 201812
  6. ZANTAC [Suspect]
     Active Substance: RANITIDINE HYDROCHLORIDE
     Indication: Cardiac disorder
     Dosage: 300 MG
     Route: 065
     Dates: start: 200601, end: 201812
  7. ZANTAC [Suspect]
     Active Substance: RANITIDINE HYDROCHLORIDE
     Indication: Product used for unknown indication
     Dosage: UNK
     Route: 065
  8. RANITIDINE HYDROCHLORIDE [Suspect]
     Active Substance: RANITIDINE HYDROCHLORIDE
     Indication: Product used for unknown indication
     Dosage: UNK
     Route: 065
  9. ZANTAC [Suspect]
     Active Substance: RANITIDINE HYDROCHLORIDE
     Indication: Cardiac disorder
     Dosage: 300 MG BOTH
     Route: 065
     Dates: start: 200601, end: 201812
  10. ZANTAC [Suspect]
     Active Substance: RANITIDINE HYDROCHLORIDE
     Dosage: UNK UNK, QD
     Route: 065
     Dates: start: 200601, end: 201812
  11. RANITIDINE [Suspect]
     Active Substance: RANITIDINE
     Indication: Cardiac disorder
     Dosage: UNKNOWN AT THIS TIME BOTH
     Route: 065
     Dates: start: 200601, end: 201812
  12. RANITIDINE [Suspect]
     Active Substance: RANITIDINE
     Dosage: 300 MG BOTH
     Route: 065
     Dates: start: 200601, end: 201812
  13. RANITIDINE [Suspect]
     Active Substance: RANITIDINE
     Indication: Cardiac disorder
     Dosage: 300 MG BOTH
     Route: 065
     Dates: start: 200601, end: 201812
  14. RANITIDINE [Suspect]
     Active Substance: RANITIDINE
     Dosage: UNK, QD
     Route: 065
     Dates: start: 200601, end: 201812

REACTIONS (1)
  - Pancreatic carcinoma [Fatal]
